FAERS Safety Report 18111858 (Version 2)
Quarter: 2020Q3

REPORT INFORMATION
  Report Type: Spontaneous
  Country: US (occurrence: US)
  Receive Date: 20200805
  Receipt Date: 20200817
  Transmission Date: 20201103
  Serious: Yes (Other)
  Sender: FDA-Public Use
  Company Number: US-SUN PHARMACEUTICAL INDUSTRIES LTD-2020R1-255405

PATIENT

DRUGS (1)
  1. LEVETIRACETAM. [Suspect]
     Active Substance: LEVETIRACETAM
     Indication: PRODUCT USED FOR UNKNOWN INDICATION
     Dosage: 1000 MILLIGRAM, DAILY IN EVENING
     Route: 065

REACTIONS (8)
  - Abnormal behaviour [Unknown]
  - Anger [Unknown]
  - Confusional state [Unknown]
  - Anxiety [Unknown]
  - Somnolence [Unknown]
  - Hallucination [Unknown]
  - Hyperkinesia [Unknown]
  - Aggression [Unknown]
